FAERS Safety Report 16278376 (Version 1)
Quarter: 2019Q2

REPORT INFORMATION
  Report Type: Spontaneous
  Country: CA (occurrence: CA)
  Receive Date: 20190506
  Receipt Date: 20190506
  Transmission Date: 20190711
  Serious: Yes (Death, Hospitalization, Disabling, Other)
  Sender: FDA-Public Use
  Company Number: CA-PURDUE-CAN-2019-0009995

PATIENT
  Age: 56 Year
  Sex: Female

DRUGS (9)
  1. ACETAMINOPHEN. [Concomitant]
     Active Substance: ACETAMINOPHEN
     Dosage: UNK
  2. LYRICA [Concomitant]
     Active Substance: PREGABALIN
  3. METHADONE [Concomitant]
     Active Substance: METHADONE HYDROCHLORIDE
  4. DILAUDID [Suspect]
     Active Substance: HYDROMORPHONE HYDROCHLORIDE
     Indication: PRODUCT USED FOR UNKNOWN INDICATION
     Dosage: 12 MG, UNK
     Route: 065
  5. PREDNISONE. [Suspect]
     Active Substance: PREDNISONE
     Indication: RASH GENERALISED
     Dosage: UNK
     Route: 048
  6. IMOVANE [Concomitant]
     Active Substance: ZOPICLONE
  7. IPILIMUMAB [Suspect]
     Active Substance: IPILIMUMAB
     Indication: BLADDER CANCER
     Dosage: 200 MG,1 EVERY 3 WEEKS
     Route: 042
  8. MORPHINE SULFATE. [Concomitant]
     Active Substance: MORPHINE SULFATE
  9. DOCUSATE SODIUM. [Concomitant]
     Active Substance: DOCUSATE SODIUM

REACTIONS (22)
  - Pain in extremity [Fatal]
  - Joint stiffness [Fatal]
  - Rash generalised [Fatal]
  - Hypertension [Fatal]
  - Pyrexia [Fatal]
  - Increased upper airway secretion [Fatal]
  - Chills [Fatal]
  - Inflammation [Fatal]
  - Product use in unapproved indication [Fatal]
  - Death [Fatal]
  - Decreased appetite [Fatal]
  - Fatigue [Fatal]
  - Metastasis [Fatal]
  - Gait inability [Fatal]
  - Groin pain [Fatal]
  - Dysphagia [Fatal]
  - Heart rate increased [Fatal]
  - Hypoaesthesia [Fatal]
  - Arthralgia [Fatal]
  - Tremor [Fatal]
  - Dry mouth [Fatal]
  - Sputum discoloured [Fatal]
